FAERS Safety Report 7967690-8 (Version None)
Quarter: 2011Q4

REPORT INFORMATION
  Report Type: 
  Country: None (occurrence: None)
  Receive Date: 20111209
  Receipt Date: 20111128
  Transmission Date: 20120403
  Serious: Yes (Hospitalization, Other)
  Sender: FDA-Public Use
  Company Number: GB-PFIZER INC-2011271397

PATIENT
  Age: 66 Year
  Sex: Female
  Weight: 67 kg

DRUGS (5)
  1. AMLODIPINE BESYLATE [Suspect]
     Indication: BLOOD PRESSURE
     Dosage: 5 MG, 1X/DAY
     Route: 048
     Dates: end: 20111025
  2. MEMANTINE HYDROCHLORIDE [Suspect]
     Indication: DEMENTIA
     Dosage: 10 MG, 2X/DAY
     Route: 048
     Dates: end: 20111025
  3. LANSOPRAZOLE [Concomitant]
     Dosage: 30 MG, 1X/DAY
  4. RAMIPRIL [Suspect]
     Indication: BLOOD PRESSURE
     Dosage: 10 MG, 1X/DAY
     Route: 048
     Dates: end: 20111025
  5. PRAVASTATIN [Suspect]
     Indication: BLOOD CHOLESTEROL
     Dosage: 40 MG, 1X/DAY
     Route: 048
     Dates: end: 20111025

REACTIONS (3)
  - ABDOMINAL PAIN UPPER [None]
  - PANCREATITIS ACUTE [None]
  - BLOOD AMYLASE INCREASED [None]
